FAERS Safety Report 5211111-5 (Version None)
Quarter: 2006Q4

REPORT INFORMATION
  Report Type: 
  Country: None (occurrence: None)
  Receive Date: 20061114
  Receipt Date: 20060717
  Transmission Date: 20070319
  Serious: No
  Sender: FDA-Public Use
  Company Number: S06-USA-02764-01

PATIENT
  Age: 95 Year
  Sex: Female

DRUGS (8)
  1. NAMENDA [Suspect]
     Indication: DEMENTIA
     Dosage: 10 MG BID PO
     Route: 048
     Dates: start: 20060714
  2. NAMENDA [Suspect]
     Indication: DEMENTIA
     Dosage: 5 MG QD PO
     Route: 048
     Dates: start: 20060623, end: 20060629
  3. NAMENDA [Suspect]
     Indication: DEMENTIA
     Dosage: 5 MG BID PO
     Route: 048
     Dates: start: 20060630, end: 20060706
  4. NAMENDA [Suspect]
     Indication: DEMENTIA
     Dosage: 15 MG QD PO
     Route: 048
     Dates: start: 20060707, end: 20060713
  5. GLUCOPHAGE [Concomitant]
  6. GLIPIZIDE [Concomitant]
  7. NORVASC [Concomitant]
  8. TYLENOL [Concomitant]

REACTIONS (1)
  - INSOMNIA [None]
